FAERS Safety Report 8203870-4 (Version None)
Quarter: 2012Q1

REPORT INFORMATION
  Report Type: 
  Country: None (occurrence: None)
  Receive Date: 20120308
  Receipt Date: 20120228
  Transmission Date: 20120608
  Serious: Yes (Hospitalization)
  Sender: FDA-Public Use
  Company Number: 2012SP011372

PATIENT
  Age: 64 Year
  Sex: Male
  Weight: 66 kg

DRUGS (9)
  1. PURSENNID /00571901/ [Concomitant]
  2. LORCAM [Concomitant]
  3. GOREI-SAN [Concomitant]
  4. ZOFRAN [Concomitant]
  5. TEMODAL [Suspect]
     Indication: ANAPLASTIC ASTROCYTOMA
     Dosage: 150 MG/M2;QD;PO ; 200 MG/M2;QD;PO ; QD;PO
     Route: 048
     Dates: start: 20100501, end: 20100505
  6. TEMODAL [Suspect]
     Indication: ANAPLASTIC ASTROCYTOMA
     Dosage: 150 MG/M2;QD;PO ; 200 MG/M2;QD;PO ; QD;PO
     Route: 048
     Dates: start: 20100529, end: 20110309
  7. TEMODAL [Suspect]
     Indication: ANAPLASTIC ASTROCYTOMA
     Dosage: 150 MG/M2;QD;PO ; 200 MG/M2;QD;PO ; QD;PO
     Route: 048
     Dates: start: 20110101, end: 20120101
  8. PREDNISOLONE [Concomitant]
  9. FAMOTIDINE [Concomitant]

REACTIONS (2)
  - HYPERNATRAEMIA [None]
  - NEPHROGENIC DIABETES INSIPIDUS [None]
